FAERS Safety Report 11244345 (Version 1)
Quarter: 2015Q3

REPORT INFORMATION
  Report Type: Spontaneous
  Country: US (occurrence: None)
  Receive Date: 20150706
  Receipt Date: 20150706
  Transmission Date: 20151125
  Serious: Yes (Disabling)
  Sender: FDA-Public Use
  Company Number: None

PATIENT
  Age: 39 Year
  Sex: Female

DRUGS (2)
  1. VORICONAZOLE. [Suspect]
     Active Substance: VORICONAZOLE
     Indication: IMMUNOSUPPRESSION
     Route: 048
     Dates: start: 20130801, end: 20140327
  2. CYCLOSPORINE. [Concomitant]
     Active Substance: CYCLOSPORINE

REACTIONS (2)
  - Periostitis [None]
  - Hypertrophic osteoarthropathy [None]

NARRATIVE: CASE EVENT DATE: 20140320
